FAERS Safety Report 6690241-5 (Version None)
Quarter: 2010Q2

REPORT INFORMATION
  Report Type: 
  Country: None (occurrence: None)
  Receive Date: 20100412
  Receipt Date: 20100104
  Transmission Date: 20101027
  Serious: No
  Sender: FDA-Public Use
  Company Number: 1000010559

PATIENT
  Age: 77 Year
  Sex: Female

DRUGS (3)
  1. BYSTOLIC [Suspect]
     Indication: HEART RATE IRREGULAR
     Dosage: 2.5 MG (2.5 MG, 1 IN 1 D), ORAL
     Route: 048
     Dates: start: 20090601, end: 20091201
  2. COQ-10 [Concomitant]
  3. VITAMINS [Concomitant]

REACTIONS (4)
  - ASTHENIA [None]
  - FATIGUE [None]
  - MENTAL IMPAIRMENT [None]
  - PAIN [None]
